FAERS Safety Report 4495831-6 (Version None)
Quarter: 2004Q4

REPORT INFORMATION
  Report Type: 
  Country: None (occurrence: None)
  Receive Date: 20041108
  Receipt Date: 20040916
  Transmission Date: 20050328
  Serious: Yes (Life-Threatening, Hospitalization)
  Sender: FDA-Public Use
  Company Number: 2004JP001672

PATIENT
  Age: 79 Year
  Sex: Male

DRUGS (1)
  1. CEFAMEZIN [Suspect]
     Indication: INFECTION PROPHYLAXIS
     Dosage: 1G TWICE PER DAY
     Route: 042
     Dates: start: 20040816, end: 20040818

REACTIONS (15)
  - ANAPHYLACTIC REACTION [None]
  - ATRIAL FIBRILLATION [None]
  - BONE MARROW DEPRESSION [None]
  - COLD SWEAT [None]
  - DISSEMINATED INTRAVASCULAR COAGULATION [None]
  - DYSPLASIA [None]
  - FLATULENCE [None]
  - LEUKOPENIA [None]
  - PATHOGEN RESISTANCE [None]
  - PERIPHERAL COLDNESS [None]
  - PYREXIA [None]
  - SEPTIC SHOCK [None]
  - STAPHYLOCOCCAL INFECTION [None]
  - URINE OUTPUT DECREASED [None]
  - VENTRICULAR EXTRASYSTOLES [None]
